FAERS Safety Report 10576291 (Version 2)
Quarter: 2015Q2

REPORT INFORMATION
  Report Type: Spontaneous
  Country: US (occurrence: US)
  Receive Date: 20141111
  Receipt Date: 20150603
  Transmission Date: 20150821
  Serious: Yes (Death, Hospitalization, Other)
  Sender: FDA-Public Use
  Company Number: US-SA-2014SA151405

PATIENT
  Age: 74 Year
  Sex: Male

DRUGS (18)
  1. MIDAZOLAM [Concomitant]
     Active Substance: MIDAZOLAM\MIDAZOLAM HYDROCHLORIDE
  2. PLAVIX [Suspect]
     Active Substance: CLOPIDOGREL BISULFATE
     Indication: STENT PLACEMENT
     Route: 065
     Dates: start: 20090301, end: 20100210
  3. ECOTRIN [Concomitant]
     Active Substance: ASPIRIN
  4. SENNA [Concomitant]
     Active Substance: SENNA LEAF\SENNOSIDES\SENNOSIDES A AND B
     Dosage: FORM: LIQUID
  5. INSULIN HUMAN [Concomitant]
     Active Substance: INSULIN HUMAN
  6. HYDRALAZINE [Concomitant]
     Active Substance: HYDRALAZINE HYDROCHLORIDE
  7. SUCCINYLCHOLINE CHLORIDE. [Concomitant]
     Active Substance: SUCCINYLCHOLINE CHLORIDE
  8. RANITIDINE [Concomitant]
     Active Substance: RANITIDINE\RANITIDINE HYDROCHLORIDE
  9. ETOMIDATE. [Concomitant]
     Active Substance: ETOMIDATE
  10. PHENYLEPHRINE [Concomitant]
     Active Substance: PHENYLEPHRINE\PHENYLEPHRINE HYDROCHLORIDE
  11. HEPARIN [Concomitant]
     Active Substance: HEPARIN SODIUM
  12. PHENYTOIN. [Concomitant]
     Active Substance: PHENYTOIN
  13. LISINOPRIL. [Concomitant]
     Active Substance: LISINOPRIL
  14. ASPIRIN. [Concomitant]
     Active Substance: ASPIRIN
  15. LIDOCAINE. [Concomitant]
     Active Substance: LIDOCAINE
  16. PROPOFOL. [Concomitant]
     Active Substance: PROPOFOL
  17. LABETALOL [Concomitant]
     Active Substance: LABETALOL\LABETALOL HYDROCHLORIDE
  18. CEFAZOLIN [Concomitant]
     Active Substance: CEFAZOLIN

REACTIONS (2)
  - Injury [Unknown]
  - Cerebral haemorrhage [Fatal]

NARRATIVE: CASE EVENT DATE: 20140210
